FAERS Safety Report 8163241-6 (Version None)
Quarter: 2012Q1

REPORT INFORMATION
  Report Type: 
  Country: None (occurrence: None)
  Receive Date: 20120224
  Receipt Date: 20110921
  Transmission Date: 20120608
  Serious: No
  Sender: FDA-Public Use
  Company Number: US-PFIZER INC-K201101110

PATIENT
  Sex: Female
  Weight: 72.562 kg

DRUGS (7)
  1. FLECTOR [Suspect]
     Indication: CONTUSION
     Dosage: UNK PATCH
     Dates: start: 20110901, end: 20110901
  2. NORVASC [Concomitant]
     Dosage: 5 MG, 1X/DAY
     Route: 048
  3. PLAVIX [Concomitant]
     Dosage: 75 MG, 1X/DAY
     Route: 048
  4. BENICAR [Concomitant]
     Dosage: 20 MG, 1X/DAY
  5. LIPITOR [Concomitant]
     Dosage: 40 MG, 1X/DAY
  6. PROTONIX [Concomitant]
     Dosage: 40 MG, 1X/DAY
     Route: 048
  7. SYNTHROID [Concomitant]
     Indication: THYROID DISORDER
     Dosage: 112 UG, 1X/DAY
     Route: 048

REACTIONS (3)
  - ASTHENIA [None]
  - PAIN [None]
  - DIZZINESS [None]
